FAERS Safety Report 4745040-8 (Version None)
Quarter: 2005Q3

REPORT INFORMATION
  Report Type: 
  Country: None (occurrence: None)
  Receive Date: 20050812
  Receipt Date: 20050802
  Transmission Date: 20060218
  Serious: Yes (Death, Other)
  Sender: FDA-Public Use
  Company Number: 2004076413

PATIENT
  Age: 57 Year
  Sex: Male

DRUGS (7)
  1. VFEND [Suspect]
     Indication: ASPERGILLOSIS
     Dosage: 300 MG (1 IN 1 D), INTRAVENOUS
     Route: 030
     Dates: start: 20040914, end: 20040927
  2. CASPOFUNGIN (CASPOFUNGIN) [Suspect]
     Indication: ASPERGILLOSIS
     Dosage: 50 MG (1 IN 1 D), INTRAVENOUS
     Route: 042
     Dates: start: 20040914, end: 20040919
  3. OMEPRAZOLE [Concomitant]
  4. LOVENOX [Concomitant]
  5. CALCIPARINE [Concomitant]
  6. AMIKIN [Concomitant]
  7. CLAFORAN [Concomitant]

REACTIONS (2)
  - BRADYCARDIA [None]
  - SEPTIC SHOCK [None]
